FAERS Safety Report 18417468 (Version 8)
Quarter: 2022Q1

REPORT INFORMATION
  Report Type: Spontaneous
  Country: US (occurrence: US)
  Receive Date: 20201022
  Receipt Date: 20220225
  Transmission Date: 20220423
  Serious: Yes (Hospitalization, Other)
  Sender: FDA-Public Use
  Company Number: US-SEATTLE GENETICS-2020SGN03088

PATIENT
  Sex: Female

DRUGS (17)
  1. TUKYSA [Suspect]
     Active Substance: TUCATINIB
     Indication: Breast cancer female
     Dosage: UNK UNK, BID
     Route: 048
     Dates: start: 20200708
  2. TUKYSA [Suspect]
     Active Substance: TUCATINIB
     Dosage: UNK UNK, BID
     Route: 048
     Dates: start: 20200708
  3. TUKYSA [Suspect]
     Active Substance: TUCATINIB
     Dosage: UNK
     Route: 048
  4. TUKYSA [Suspect]
     Active Substance: TUCATINIB
     Dosage: UNK
     Route: 065
  5. TUKYSA [Suspect]
     Active Substance: TUCATINIB
     Dosage: UNK
     Route: 065
  6. TUKYSA [Suspect]
     Active Substance: TUCATINIB
     Dosage: UNK
     Route: 065
  7. TUKYSA [Suspect]
     Active Substance: TUCATINIB
     Dosage: UNK
     Route: 065
  8. TUKYSA [Suspect]
     Active Substance: TUCATINIB
     Dosage: UNK
     Route: 065
  9. TUKYSA [Suspect]
     Active Substance: TUCATINIB
     Dosage: UNK
     Route: 065
  10. TUKYSA [Suspect]
     Active Substance: TUCATINIB
     Dosage: UNK
     Route: 065
  11. TUKYSA [Suspect]
     Active Substance: TUCATINIB
     Dosage: UNK
     Route: 065
  12. TUKYSA [Suspect]
     Active Substance: TUCATINIB
     Dosage: UNK
     Route: 065
  13. TUKYSA [Suspect]
     Active Substance: TUCATINIB
     Dosage: UNK
     Route: 065
  14. TUKYSA [Suspect]
     Active Substance: TUCATINIB
     Dosage: UNK
     Route: 065
  15. TUKYSA [Suspect]
     Active Substance: TUCATINIB
     Dosage: 200 MG
     Route: 065
     Dates: start: 20220216
  16. XELODA [Suspect]
     Active Substance: CAPECITABINE
     Indication: Breast cancer female
     Dosage: UNK
     Route: 065
  17. HERCEPTIN [Suspect]
     Active Substance: TRASTUZUMAB
     Indication: Breast cancer female
     Dosage: UNK
     Route: 065

REACTIONS (22)
  - Brain operation [Unknown]
  - Biopsy lung [Unknown]
  - Dehydration [Unknown]
  - Lung disorder [Unknown]
  - Pneumonia [Unknown]
  - Memory impairment [Unknown]
  - Tooth disorder [Unknown]
  - Emotional disorder [Unknown]
  - Fluid intake reduced [Unknown]
  - Unevaluable event [Unknown]
  - Sensitive skin [Unknown]
  - Skin disorder [Not Recovered/Not Resolved]
  - Malaise [Unknown]
  - Fall [Unknown]
  - Urinary tract infection [Unknown]
  - Sleep disorder [Not Recovered/Not Resolved]
  - Hepatic enzyme increased [Unknown]
  - Rash [Unknown]
  - Nausea [Unknown]
  - Diarrhoea [Not Recovered/Not Resolved]
  - Product dose omission issue [Unknown]
  - Neoplasm progression [Unknown]
